FAERS Safety Report 11800179 (Version 3)
Quarter: 2016Q1

REPORT INFORMATION
  Report Type: Report from Study
  Country: US (occurrence: US)
  Receive Date: 20151203
  Receipt Date: 20160129
  Transmission Date: 20160525
  Serious: No
  Sender: FDA-Public Use
  Company Number: US-AMGEN-USASL2015117994

PATIENT
  Age: 81 Year
  Sex: Male
  Weight: 93.15 kg

DRUGS (1)
  1. REPATHA [Suspect]
     Active Substance: EVOLOCUMAB
     Indication: HYPERCHOLESTEROLAEMIA
     Dosage: 140 MG/ML, Q2WK
     Route: 030
     Dates: start: 20150918, end: 20151208

REACTIONS (5)
  - Headache [Unknown]
  - Back pain [Unknown]
  - Rash [Unknown]
  - Pain in extremity [Unknown]
  - Incorrect route of drug administration [Unknown]

NARRATIVE: CASE EVENT DATE: 201510
